FAERS Safety Report 6385367-X (Version None)
Quarter: 2009Q4

REPORT INFORMATION
  Report Type: 
  Country: None (occurrence: None)
  Receive Date: 20091002
  Receipt Date: 20080902
  Transmission Date: 20100525
  Serious: No
  Sender: FDA-Public Use
  Company Number: US-ASTRAZENECA-2008UW17983

PATIENT
  Age: 46 Year
  Sex: Female
  Weight: 77.1 kg

DRUGS (2)
  1. ARIMIDEX [Suspect]
     Indication: BREAST CANCER FEMALE
     Route: 048
     Dates: start: 20080201, end: 20080801
  2. ZETIA [Concomitant]

REACTIONS (5)
  - ALOPECIA [None]
  - BONE PAIN [None]
  - MUSCULOSKELETAL STIFFNESS [None]
  - PALPITATIONS [None]
  - RASH [None]
